FAERS Safety Report 10072442 (Version 2)
Quarter: 2014Q2

REPORT INFORMATION
  Report Type: Report from Study
  Country: AT (occurrence: AT)
  Receive Date: 20140411
  Receipt Date: 20140411
  Transmission Date: 20141212
  Serious: Yes (Death, Hospitalization)
  Sender: FDA-Public Use
  Company Number: AT-ROCHE-GNE249073

PATIENT
  Age: 81 Year
  Sex: Male

DRUGS (4)
  1. MABTHERA [Suspect]
     Indication: CHRONIC LYMPHOCYTIC LEUKAEMIA
     Dosage: 720 MG, D1
     Route: 042
     Dates: start: 20060127, end: 20070301
  2. ENDOXAN [Suspect]
     Indication: CHRONIC LYMPHOCYTIC LEUKAEMIA
     Dosage: 510/500/450 MG, D1,2,3
     Route: 042
     Dates: start: 20060127
  3. FLUDARABINE [Suspect]
     Indication: CHRONIC LYMPHOCYTIC LEUKAEMIA
     Dosage: 70 MG, D1-5
     Route: 048
     Dates: start: 20060127
  4. TEBOFORTAN [Concomitant]

REACTIONS (1)
  - Pneumonia [Fatal]
